FAERS Safety Report 9618431 (Version 2)
Quarter: 2013Q4

REPORT INFORMATION
  Report Type: Spontaneous
  Country: US (occurrence: US)
  Receive Date: 20131014
  Receipt Date: 20131122
  Transmission Date: 20140711
  Serious: Yes (Other)
  Sender: FDA-Public Use
  Company Number: US-PFIZER INC-2013291222

PATIENT
  Age: 61 Year
  Sex: Female

DRUGS (39)
  1. XELJANZ [Suspect]
     Indication: URINARY TRACT INFECTION
     Dosage: 5MG (1 TABLET) TWICE DAILY
     Route: 048
     Dates: start: 20130927
  2. XELJANZ [Suspect]
     Indication: CYSTITIS
  3. PREDNISONE [Concomitant]
     Dosage: 2.5 MG, 2X/DAY
     Dates: start: 20120627
  4. PREDNISONE [Concomitant]
     Dosage: 2.5 MG, 2X/DAY
     Dates: start: 20121127
  5. PREDNISONE [Concomitant]
     Dosage: 2.5 MG, 2X/DAY
     Dates: start: 20130425
  6. PREDNISONE [Concomitant]
     Dosage: 2.5 MG, 2X/DAY
     Dates: start: 20130827
  7. CELEBREX [Concomitant]
     Dosage: 200 MG, 1X/DAY
     Dates: start: 20120627
  8. CELEBREX [Concomitant]
     Dosage: 200 MG, 1X/DAY
     Dates: start: 20121127
  9. CELEBREX [Concomitant]
     Dosage: 200 MG, 1X/DAY
     Dates: start: 20130425
  10. CELEBREX [Concomitant]
     Dosage: 200 MG, 1X/DAY
     Dates: start: 20130827
  11. ACTONEL [Concomitant]
     Dosage: 150 MG, MONTHLY
     Dates: start: 20120627
  12. ACTONEL [Concomitant]
     Dosage: 150 MG, 1X/DAY
     Dates: start: 20121127
  13. ACTONEL [Concomitant]
     Dosage: 150 MG, MONTHLY
     Dates: start: 20130425
  14. ACTONEL [Concomitant]
     Dosage: 150 MG, MONTHLY
     Dates: start: 20130827
  15. CIMZIA [Concomitant]
     Dosage: 1 DF, MONTHLY
     Dates: start: 20120627
  16. CIMZIA [Concomitant]
     Dosage: 1 DF, MONTHLY
     Dates: start: 20121127
  17. CIMZIA [Concomitant]
     Dosage: 1 DF, MONTHLY
     Dates: start: 20130425
  18. CIMZIA [Concomitant]
     Dosage: 1 DF, MONTHLY
     Dates: start: 20130827
  19. CALCIUM + VIT D [Concomitant]
     Dosage: 2 DF, 1X/DAY
     Dates: start: 20120627
  20. CALCIUM + VIT D [Concomitant]
     Dosage: 2 DF, 1X/DAY
     Dates: start: 20121127
  21. CALCIUM + VIT D [Concomitant]
     Dosage: 2 DF, 1X/DAY
     Dates: start: 20130425
  22. CALCIUM + VIT D [Concomitant]
     Dosage: 2 DF, 1X/DAY
     Dates: start: 20130827
  23. FISH OIL [Concomitant]
     Dosage: 1 DF, 1X/DAY
     Dates: start: 20120627
  24. FISH OIL [Concomitant]
     Dosage: 1 DF, 1X/DAY
     Dates: start: 20121127
  25. FISH OIL [Concomitant]
     Dosage: 1 DF, 1X/DAY
     Dates: start: 20130425
  26. FISH OIL [Concomitant]
     Dosage: 1 DF, 1X/DAY
     Dates: start: 20130827
  27. B 12 [Concomitant]
     Dosage: 1 DF, 1X/DAY
     Dates: start: 20121127
  28. B 12 [Concomitant]
     Dosage: 1 DF, 1X/DAY
     Dates: start: 20130425
  29. B 12 [Concomitant]
     Dosage: 1 DF, 1X/DAY
     Dates: start: 20130827
  30. Z-PAK [Concomitant]
     Dosage: UNK, AS DIRECTED
     Dates: start: 20130425
  31. ALKA-SELTZER [Concomitant]
     Indication: NASOPHARYNGITIS
     Dosage: UNK, AS DIRECTED
     Dates: start: 20130425
  32. FIBRE PILL [Concomitant]
     Dosage: AS NEEDED
     Dates: start: 20120627
  33. FIBRE PILL [Concomitant]
     Dosage: 1 DF, 1X/DAY
     Dates: start: 20121127
  34. FIBRE PILL [Concomitant]
     Dosage: AS NEEDED
     Dates: start: 20130425
  35. FIBRE PILL [Concomitant]
     Dosage: AS NEEDED
     Dates: start: 20130827
  36. PROBIOTICS [Concomitant]
     Dosage: AS NEEDED
     Dates: start: 20120627
  37. PROBIOTICS [Concomitant]
     Dosage: AS NEEDED
     Dates: start: 20121127
  38. PROBIOTICS [Concomitant]
     Dosage: AS NEEDED
     Dates: start: 20130425
  39. PROBIOTICS [Concomitant]
     Dosage: AS NEEDED
     Dates: start: 20130827

REACTIONS (3)
  - Off label use [Unknown]
  - Urinary tract infection [Recovering/Resolving]
  - Haematuria [Unknown]
